FAERS Safety Report 19497032 (Version 1)
Quarter: 2021Q3

REPORT INFORMATION
  Report Type: Spontaneous
  Country: US (occurrence: US)
  Receive Date: 20210705
  Receipt Date: 20210705
  Transmission Date: 20211014
  Serious: Yes (Other)
  Sender: FDA-Public Use
  Company Number: None

PATIENT
  Age: 48 Year
  Weight: 69.75 kg

DRUGS (3)
  1. IMITREX 100MG [Concomitant]
  2. AIMOVIG [Suspect]
     Active Substance: ERENUMAB-AOOE
     Indication: MIGRAINE
     Dosage: ?          QUANTITY:1 INJECTION(S);OTHER FREQUENCY:MONTHLY;?
     Route: 058
     Dates: start: 20200101, end: 20200302
  3. LEVOTHYROXINE 75MCG [Concomitant]
     Active Substance: LEVOTHYROXINE

REACTIONS (2)
  - Trichorrhexis [None]
  - Alopecia [None]

NARRATIVE: CASE EVENT DATE: 20200301
